FAERS Safety Report 6424986-9 (Version None)
Quarter: 2009Q4

REPORT INFORMATION
  Report Type: 
  Country: None (occurrence: None)
  Receive Date: 20091102
  Receipt Date: 20091102
  Transmission Date: 20100525
  Serious: Yes (Hospitalization)
  Sender: FDA-Public Use
  Company Number: None

PATIENT

DRUGS (2)
  1. SIMAVASTATIN [Suspect]
     Indication: HYPERLIPIDAEMIA
     Dosage: 80 MG AT BEDTIME PO
     Route: 048
     Dates: start: 20081216, end: 20090126
  2. COLCHICINE [Suspect]
     Indication: GOUT
     Dosage: 0.6 MG PRN PO
     Route: 048
     Dates: start: 20081201, end: 20090126

REACTIONS (2)
  - RHABDOMYOLYSIS [None]
  - URINE ANALYSIS ABNORMAL [None]
